FAERS Safety Report 13182676 (Version 3)
Quarter: 2017Q2

REPORT INFORMATION
  Report Type: Spontaneous
  Country: JP (occurrence: JP)
  Receive Date: 20170203
  Receipt Date: 20170519
  Transmission Date: 20170830
  Serious: Yes (Death, Hospitalization)
  Sender: FDA-Public Use
  Company Number: JP-ABBVIE-16K-087-1761618-00

PATIENT
  Age: 53 Year
  Sex: Male
  Weight: 57.8 kg

DRUGS (20)
  1. ZOLPIDEM TARTRATE. [Concomitant]
     Active Substance: ZOLPIDEM TARTRATE
     Indication: INSOMNIA
     Route: 048
     Dates: start: 20140904, end: 20161025
  2. SODIUM ALGINATE [Concomitant]
     Active Substance: SODIUM ALGINATE
     Indication: GASTRIC DISORDER
     Route: 048
     Dates: start: 20151112, end: 201609
  3. SPIRONOLACTONE. [Concomitant]
     Active Substance: SPIRONOLACTONE
     Indication: OEDEMA
     Route: 048
     Dates: start: 20150629, end: 20161025
  4. CALCIUM L -ASPARTATE HYDRATE [Concomitant]
     Indication: HYPOKALAEMIA
     Route: 048
     Dates: start: 20160107, end: 20160928
  5. REBAMIPIDE [Concomitant]
     Active Substance: REBAMIPIDE
     Indication: GASTRITIS
     Route: 048
     Dates: start: 20111109, end: 20160930
  6. YOKUKANSAN [Concomitant]
     Active Substance: HERBALS
     Indication: INSOMNIA
     Route: 048
     Dates: start: 20150626, end: 201609
  7. POTASSIUM L ASPARTATE [Concomitant]
     Indication: HYPOKALAEMIA
     Route: 048
     Dates: start: 20160928
  8. HUMIRA [Suspect]
     Active Substance: ADALIMUMAB
     Indication: CROHN^S DISEASE
     Route: 058
     Dates: start: 20110214, end: 20160922
  9. TRANEXAMIC ACID. [Concomitant]
     Active Substance: TRANEXAMIC ACID
     Indication: HAEMOSTASIS
     Route: 048
     Dates: start: 20111021, end: 20130930
  10. SODIUM ALGINATE [Concomitant]
     Active Substance: SODIUM ALGINATE
     Indication: PROPHYLAXIS
  11. LACTOMIN [Concomitant]
     Active Substance: LACTOBACILLUS ACIDOPHILUS
     Indication: DIARRHOEA
     Route: 048
     Dates: start: 20141211, end: 20161007
  12. TIAPRIDE HYDROCHLORIDE [Concomitant]
     Active Substance: TIAPRIDE HYDROCHLORIDE
     Indication: AUTONOMIC NEUROPATHY
     Route: 048
     Dates: start: 20150626, end: 20161012
  13. POTASSIUM L ASPARTATE [Concomitant]
     Indication: FUNGAEMIA
     Route: 041
     Dates: start: 20160915
  14. MESALAZINE [Concomitant]
     Active Substance: MESALAMINE
     Indication: CROHN^S DISEASE
     Route: 048
     Dates: end: 20161025
  15. ELENTAL [Concomitant]
     Active Substance: AMINO ACIDS\CARBOHYDRATES\MINERALS\SOYBEAN OIL\VITAMINS
     Indication: CROHN^S DISEASE
     Route: 048
     Dates: end: 201609
  16. CALCITRIOL. [Concomitant]
     Active Substance: CALCITRIOL
     Indication: OSTEOPOROSIS
     Route: 048
     Dates: start: 20150820, end: 20161025
  17. ALBUMIN TANNATE [Concomitant]
     Active Substance: ALBUMIN BOVINE\TANNIC ACID
     Indication: DIARRHOEA
     Route: 048
     Dates: start: 20141225, end: 20161007
  18. CARBAZOCHROME SODIUM SULFONATE HYDRATE [Concomitant]
     Indication: HAEMOSTASIS
     Route: 048
     Dates: start: 20130502, end: 20160930
  19. CLOSTRIDIUM BUTYRICUM [Concomitant]
     Active Substance: CLOSTRIDIUM BUTYRICUM SPORES STRAIN M-55
     Indication: DIARRHOEA
     Route: 048
     Dates: start: 20161025
  20. VONOPRAZAN FUMARATE [Concomitant]
     Active Substance: VONOPRAZAN FUMURATE
     Indication: UPPER GASTROINTESTINAL HAEMORRHAGE
     Route: 048
     Dates: start: 20160818, end: 20160928

REACTIONS (39)
  - Fungaemia [Fatal]
  - Decreased appetite [Not Recovered/Not Resolved]
  - Acute kidney injury [Unknown]
  - Oedema [Unknown]
  - Short-bowel syndrome [Unknown]
  - Oesophagitis [Unknown]
  - Hypokalaemia [Unknown]
  - Pneumonia [Unknown]
  - Upper gastrointestinal haemorrhage [Unknown]
  - Crohn^s disease [Unknown]
  - General physical health deterioration [Unknown]
  - Fungal infection [Unknown]
  - Bacterial infection [Unknown]
  - Haematemesis [Unknown]
  - Melaena [Unknown]
  - Respiratory disorder [Unknown]
  - Diarrhoea [Recovered/Resolved]
  - Osteoporosis [Unknown]
  - Hypocalcaemia [Unknown]
  - C-reactive protein increased [Unknown]
  - White blood cell count increased [Unknown]
  - Mobility decreased [Unknown]
  - Anaemia [Unknown]
  - Autonomic neuropathy [Unknown]
  - Hyperthermia [Unknown]
  - White blood cell count decreased [Unknown]
  - Delirium [Unknown]
  - Candida test positive [Unknown]
  - Haemoglobin decreased [Unknown]
  - Blood urea increased [Unknown]
  - Blood creatinine increased [Unknown]
  - Gastritis [Unknown]
  - Decreased appetite [Unknown]
  - Hypophagia [Unknown]
  - Red blood cell count decreased [Not Recovered/Not Resolved]
  - Haematocrit decreased [Unknown]
  - Pyrexia [Not Recovered/Not Resolved]
  - Diarrhoea [Unknown]
  - Renal impairment [Unknown]

NARRATIVE: CASE EVENT DATE: 20110527
